FAERS Safety Report 17229362 (Version 1)
Quarter: 2019Q4

REPORT INFORMATION
  Report Type: Spontaneous
  Country: US (occurrence: US)
  Receive Date: 20191210
  Receipt Date: 20191210
  Transmission Date: 20200122
  Serious: Yes (Death)
  Sender: FDA-Public Use
  Company Number: None

PATIENT
  Age: 72 Year
  Sex: Female
  Weight: 86.18 kg

DRUGS (22)
  1. OMEPRAZOLE. [Concomitant]
     Active Substance: OMEPRAZOLE
  2. VIT A [Concomitant]
  3. E12 LQ. AMINOS [Concomitant]
  4. VITAMIN B12 [Concomitant]
     Active Substance: CYANOCOBALAMIN
  5. TRADJENTA [Concomitant]
     Active Substance: LINAGLIPTIN
  6. SOMA [Concomitant]
     Active Substance: CARISOPRODOL
  7. OMEGA 3,6,9 [Concomitant]
  8. BIOTIN [Concomitant]
     Active Substance: BIOTIN
  9. ALOE VERA [Concomitant]
     Active Substance: ALOE VERA LEAF
  10. IBUPROFEN. [Concomitant]
     Active Substance: IBUPROFEN
  11. VITAMIN D3 [Concomitant]
     Active Substance: CHOLECALCIFEROL
  12. ZINC. [Concomitant]
     Active Substance: ZINC
  13. GLIPIZIDE. [Concomitant]
     Active Substance: GLIPIZIDE
  14. VITAMIN C [Concomitant]
     Active Substance: ASCORBIC ACID
  15. POTASSIUM [Concomitant]
     Active Substance: POTASSIUM
  16. METFORMIN [Suspect]
     Active Substance: METFORMIN HYDROCHLORIDE
     Indication: DIABETES MELLITUS
     Dosage: ?          QUANTITY:500 MG ONE:4 TIMES A DAY?
     Route: 048
  17. CINNAMON. [Concomitant]
     Active Substance: CINNAMON
  18. NEURONTIN [Concomitant]
     Active Substance: GABAPENTIN
  19. HYDROCHLOROTHIAZIDE. [Concomitant]
     Active Substance: HYDROCHLOROTHIAZIDE
  20. TRIAMCINOLONE CREAM [Concomitant]
     Active Substance: TRIAMCINOLONE
  21. FOLIC ACID. [Concomitant]
     Active Substance: FOLIC ACID
  22. CHROMIUM PICOLINATE [Concomitant]
     Active Substance: CHROMIUM PICOLINATE

REACTIONS (8)
  - Migraine [None]
  - Vertigo [None]
  - Headache [None]
  - Vomiting [None]
  - Malaise [None]
  - Abdominal discomfort [None]
  - Product quality issue [None]
  - Dizziness [None]
